FAERS Safety Report 10134389 (Version 2)
Quarter: 2014Q2

REPORT INFORMATION
  Report Type: Spontaneous
  Country: US (occurrence: US)
  Receive Date: 20140428
  Receipt Date: 20140501
  Transmission Date: 20141212
  Serious: No
  Sender: FDA-Public Use
  Company Number: US-009507513-1404USA012157

PATIENT
  Sex: 0

DRUGS (2)
  1. TEMODAR [Suspect]
     Indication: GLIOMA
     Route: 048
  2. THERAPEUTIC RADIOPHARMACEUTICAL (UNSPECIFIED) [Concomitant]

REACTIONS (1)
  - Treatment failure [Recovering/Resolving]
